FAERS Safety Report 6712283-3 (Version None)
Quarter: 2010Q2

REPORT INFORMATION
  Report Type: 
  Country: None (occurrence: None)
  Receive Date: 20100505
  Receipt Date: 20100423
  Transmission Date: 20101027
  Serious: Yes (Hospitalization)
  Sender: FDA-Public Use
  Company Number: RO-ELI_LILLY_AND_COMPANY-RO201005000579

PATIENT
  Sex: Male
  Weight: 34 kg

DRUGS (2)
  1. STRATTERA [Suspect]
     Indication: ATTENTION DEFICIT/HYPERACTIVITY DISORDER
     Dosage: 25 MG, UNK
     Route: 065
     Dates: start: 20081001, end: 20090901
  2. GINKGO BILOBA [Concomitant]
     Indication: LEARNING DISABILITY
     Dosage: 80 MG, DAILY (1/D)
     Route: 065
     Dates: start: 20010501, end: 20101101

REACTIONS (1)
  - GLAUCOMA [None]
